FAERS Safety Report 21205203 (Version 1)
Quarter: 2022Q3

REPORT INFORMATION
  Report Type: Spontaneous
  Country: IT (occurrence: IT)
  Receive Date: 20220812
  Receipt Date: 20220812
  Transmission Date: 20221027
  Serious: Yes (Other)
  Sender: FDA-Public Use
  Company Number: IT-BAUSCH-BL-2022-019826

PATIENT
  Age: 80 Year
  Sex: Male

DRUGS (4)
  1. PYRIDOSTIGMINE [Suspect]
     Active Substance: PYRIDOSTIGMINE
     Indication: Myasthenia gravis
     Route: 065
  2. PREDNISONE [Suspect]
     Active Substance: PREDNISONE
     Indication: Myasthenia gravis
     Route: 065
  3. ELASOMERAN [Concomitant]
     Active Substance: ELASOMERAN
     Indication: COVID-19 immunisation
     Dosage: FIRST DOSE WAS GIVEN 4 WEEKS EARLIER
  4. ELASOMERAN [Concomitant]
     Active Substance: ELASOMERAN
     Dosage: SECOND DOSE

REACTIONS (1)
  - Myasthenia gravis [Recovered/Resolved]
